FAERS Safety Report 15004589 (Version 1)
Quarter: 2018Q2

REPORT INFORMATION
  Report Type: Spontaneous
  Country: US (occurrence: US)
  Receive Date: 20180524
  Receipt Date: 20180524
  Transmission Date: 20180711
  Serious: Yes (Hospitalization)
  Sender: FDA-Public Use
  Company Number: None

PATIENT
  Age: 19 Month
  Sex: Male
  Weight: 16.2 kg

DRUGS (1)
  1. ORAJEL [Suspect]
     Active Substance: ALLANTOIN\BENZOCAINE\CAMPHOR (NATURAL)\DIMETHICONE\MENTHOL
     Indication: TEETHING
     Route: 048

REACTIONS (5)
  - Somnolence [None]
  - Speech disorder [None]
  - Gait inability [None]
  - Dyspnoea [None]
  - Eating disorder [None]

NARRATIVE: CASE EVENT DATE: 20180418
